FAERS Safety Report 6328576-8 (Version None)
Quarter: 2009Q3

REPORT INFORMATION
  Report Type: 
  Country: None (occurrence: None)
  Receive Date: 20090826
  Receipt Date: 20090814
  Transmission Date: 20100115
  Serious: Yes (Other)
  Sender: FDA-Public Use
  Company Number: US-RANBAXY-2009RR-26425

PATIENT
  Age: 51 Year
  Sex: Male

DRUGS (5)
  1. OLANZAPINE [Suspect]
     Dosage: 100 MG, SINGLE
     Route: 048
  2. GABAPENTIN [Suspect]
     Dosage: 1500 MG, UNK
     Route: 048
  3. OLANZAPINE [Concomitant]
     Dosage: 5 MG, QD
  4. GABAPENTIN [Concomitant]
     Dosage: 900 MG, QD
  5. PAROXETINE HCL [Concomitant]
     Dosage: 20 MG, QD

REACTIONS (2)
  - PRIAPISM [None]
  - SUICIDE ATTEMPT [None]
